FAERS Safety Report 11912795 (Version 1)
Quarter: 2016Q1

REPORT INFORMATION
  Report Type: Spontaneous
  Country: US (occurrence: None)
  Receive Date: 20160112
  Receipt Date: 20160112
  Transmission Date: 20160526
  Serious: Yes (Disabling, Other)
  Sender: FDA-Public Use
  Company Number: None

PATIENT
  Age: 50 Year
  Sex: Male
  Weight: 98.43 kg

DRUGS (7)
  1. ADDERAL XR [Concomitant]
  2. PEPCID [Concomitant]
     Active Substance: FAMOTIDINE
  3. WELLBUTREN [Concomitant]
  4. XANAX EXTENDED RELEASE [Concomitant]
  5. VOLTAREN [Concomitant]
     Active Substance: DICLOFENAC SODIUM
  6. ENBREL [Suspect]
     Active Substance: ETANERCEPT
     Indication: PSORIATIC ARTHROPATHY
     Dosage: INTO THE MUSCLE
  7. REMERON [Concomitant]
     Active Substance: MIRTAZAPINE

REACTIONS (1)
  - Pain [None]

NARRATIVE: CASE EVENT DATE: 20151012
